FAERS Safety Report 9681781 (Version 2)
Quarter: 2013Q4

REPORT INFORMATION
  Report Type: Spontaneous
  Country: US (occurrence: US)
  Receive Date: 20131111
  Receipt Date: 20131112
  Transmission Date: 20140711
  Serious: Yes (Other)
  Sender: FDA-Public Use
  Company Number: US-PFIZER INC-2013319770

PATIENT
  Age: 61 Year
  Sex: Female
  Weight: 81.63 kg

DRUGS (2)
  1. CHANTIX [Suspect]
     Indication: SMOKING CESSATION THERAPY
     Dosage: 0.5 MG, 1X/DAY
     Route: 048
     Dates: start: 2012, end: 2012
  2. CHANTIX [Suspect]
     Dosage: UNK
     Route: 048
     Dates: start: 2012, end: 2012

REACTIONS (4)
  - Convulsion [Recovered/Resolved]
  - Mental disorder [Not Recovered/Not Resolved]
  - Weight increased [Unknown]
  - Alopecia [Not Recovered/Not Resolved]
